FAERS Safety Report 7179500-X (Version None)
Quarter: 2010Q4

REPORT INFORMATION
  Report Type: 
  Country: None (occurrence: None)
  Receive Date: 20101221
  Receipt Date: 20101101
  Transmission Date: 20110411
  Serious: Yes (Death, Hospitalization)
  Sender: FDA-Public Use
  Company Number: JP-BAYER-200914192BYL

PATIENT
  Sex: Male
  Weight: 54 kg

DRUGS (13)
  1. NEXAVAR [Suspect]
     Route: 048
     Dates: start: 20090616, end: 20090706
  2. LOXONIN [Concomitant]
     Dosage: SINCE BEFORE ADMINISTRATION
     Route: 048
  3. SELBEX [Concomitant]
     Dosage: SINCE BEFORE ADMINISTRATION
     Route: 048
  4. URSO 250 [Concomitant]
     Dosage: SINCE BEFORE ADMINISTRATION
     Route: 048
  5. GLYCYRON [Concomitant]
     Dosage: SINCE BEFORE ADMINISTRATION
     Route: 048
  6. LIVACT [Concomitant]
     Dosage: SINCE BEFORE ADMINISTRATION
     Route: 048
  7. GLAKAY [Concomitant]
     Dosage: SINCE BEFORE ADMINISTRATION
     Route: 048
  8. ASPARA K [Concomitant]
     Dosage: SINCE BEFORE ADMINISTRATION
     Route: 048
  9. AMLODIN [Concomitant]
     Dosage: SINCE BEFORE ADMINISTRATION
     Route: 048
  10. LASIX [Concomitant]
     Dosage: 20 MG, QD
     Route: 048
     Dates: start: 20090730, end: 20090908
  11. ALDACTONE [Concomitant]
     Dosage: 50 MG, QD
     Route: 048
     Dates: start: 20090630, end: 20090908
  12. FALKAMIN [Concomitant]
     Dosage: SINCE BEFORE ADMINISTRATION
     Route: 048
  13. UREPEARL [Concomitant]
     Indication: PROPHYLAXIS
     Route: 061
     Dates: start: 20090616

REACTIONS (2)
  - HEPATORENAL FAILURE [None]
  - RASH [None]
